FAERS Safety Report 23277261 (Version 1)
Quarter: 2023Q4

REPORT INFORMATION
  Report Type: Other
  Country: US (occurrence: None)
  Receive Date: 20231208
  Receipt Date: 20231208
  Transmission Date: 20240109
  Serious: Yes (Death, Other)
  Sender: FDA-Public Use
  Company Number: US-ROCHE-3466822

PATIENT

DRUGS (3)
  1. IBRUTINIB [Suspect]
     Active Substance: IBRUTINIB
     Indication: Mantle cell lymphoma
     Route: 048
  2. RITUXIMAB [Suspect]
     Active Substance: RITUXIMAB
     Indication: Mantle cell lymphoma
     Route: 042
  3. BENDAMUSTINE [Suspect]
     Active Substance: BENDAMUSTINE
     Indication: Mantle cell lymphoma
     Route: 065

REACTIONS (47)
  - Cardiac arrest [Fatal]
  - Cardio-respiratory arrest [Fatal]
  - Cardiopulmonary failure [Fatal]
  - Myocardial infarction [Fatal]
  - Acute myeloid leukaemia [Fatal]
  - Myelodysplastic syndrome [Fatal]
  - Respiratory disorder [Fatal]
  - Multiple organ dysfunction syndrome [Fatal]
  - General physical health deterioration [Fatal]
  - Traumatic intracranial haemorrhage [Fatal]
  - Tumour lysis syndrome [Fatal]
  - Ischaemic stroke [Fatal]
  - Sudden death [Fatal]
  - Haemorrhagic stroke [Fatal]
  - Diarrhoea [Unknown]
  - Nausea [Unknown]
  - Vomiting [Unknown]
  - Constipation [Unknown]
  - Abdominal pain [Unknown]
  - Pyrexia [Unknown]
  - Fatigue [Unknown]
  - Oedema peripheral [Unknown]
  - Asthenia [Unknown]
  - Chills [Unknown]
  - Neutropenia [Unknown]
  - Anaemia [Unknown]
  - Thrombocytopenia [Unknown]
  - Leukopenia [Unknown]
  - Lymphopenia [Unknown]
  - Rash [Unknown]
  - Pruritus [Unknown]
  - Rash maculo-papular [Unknown]
  - Cough [Unknown]
  - Dyspnoea [Unknown]
  - Decreased appetite [Unknown]
  - Hypokalaemia [Unknown]
  - Arthralgia [Unknown]
  - Back pain [Unknown]
  - Myalgia [Unknown]
  - Headache [Unknown]
  - Hypertension [Unknown]
  - Infusion related reaction [Unknown]
  - Atrial fibrillation [Unknown]
  - Weight decreased [Unknown]
  - Insomnia [Unknown]
  - Haemorrhage [Unknown]
  - Epistaxis [Unknown]
